FAERS Safety Report 7340671-3 (Version None)
Quarter: 2011Q1

REPORT INFORMATION
  Report Type: 
  Country: None (occurrence: None)
  Receive Date: 20110309
  Receipt Date: 20110303
  Transmission Date: 20110831
  Serious: Yes (Hospitalization)
  Sender: FDA-Public Use
  Company Number: CO-ROCHE-760703

PATIENT
  Sex: Male

DRUGS (3)
  1. TACROLIMUS [Concomitant]
     Indication: LIVER TRANSPLANT
     Route: 048
  2. CELLCEPT [Suspect]
     Indication: LIVER TRANSPLANT
     Dosage: FREQUENCY: DAILY
     Route: 048
     Dates: start: 20090907
  3. PREDNISOLONE [Concomitant]
     Indication: LIVER TRANSPLANT
     Dosage: FREQUENCY: DAILY
     Route: 048

REACTIONS (1)
  - TRANSPLANT REJECTION [None]
